FAERS Safety Report 8236711-X (Version None)
Quarter: 2012Q1

REPORT INFORMATION
  Report Type: 
  Country: None (occurrence: None)
  Receive Date: 20120323
  Receipt Date: 20120309
  Transmission Date: 20120608
  Serious: Yes (Hospitalization, Other)
  Sender: FDA-Public Use
  Company Number: JPI-P-000899

PATIENT
  Age: 59 Year
  Sex: Male

DRUGS (16)
  1. MODAFINIL [Concomitant]
  2. METFORMIN EMBONATE [Concomitant]
  3. TRIMETAZIDINE HYDROCHLORIDE [Concomitant]
  4. LEVETIRACETAM [Suspect]
     Indication: PRODUCT USED FOR UNKNOWN INDICATION
  5. FENOFIBRATE [Concomitant]
  6. XYREM [Suspect]
     Indication: CATAPLEXY
     Dosage: SEE IMAGE
     Route: 048
     Dates: start: 20061220, end: 20070208
  7. XYREM [Suspect]
     Indication: NARCOLEPSY
     Dosage: SEE IMAGE
     Route: 048
     Dates: start: 20061220, end: 20070208
  8. XYREM [Suspect]
     Indication: CATAPLEXY
     Dosage: SEE IMAGE
     Route: 048
     Dates: start: 20090629, end: 20120305
  9. XYREM [Suspect]
     Indication: NARCOLEPSY
     Dosage: SEE IMAGE
     Route: 048
     Dates: start: 20090629, end: 20120305
  10. XYREM [Suspect]
     Indication: CATAPLEXY
     Dosage: SEE IMAGE
     Route: 048
     Dates: start: 20120306
  11. XYREM [Suspect]
     Indication: NARCOLEPSY
     Dosage: SEE IMAGE
     Route: 048
     Dates: start: 20120306
  12. XYREM [Suspect]
     Indication: CATAPLEXY
     Dosage: SEE IMAGE
     Route: 048
     Dates: start: 20070209, end: 20090603
  13. XYREM [Suspect]
     Indication: NARCOLEPSY
     Dosage: SEE IMAGE
     Route: 048
     Dates: start: 20070209, end: 20090603
  14. ESOMEPRAZOLE MAGNESIUM [Concomitant]
  15. CLOMIPRAMINE HCL [Concomitant]
  16. CIPROFIBRATE [Concomitant]

REACTIONS (7)
  - IRRITABILITY [None]
  - DISORIENTATION [None]
  - AMNESIA [None]
  - AGGRESSION [None]
  - SOMNAMBULISM [None]
  - WOUND [None]
  - PLEURISY [None]
